FAERS Safety Report 9494672 (Version 3)
Quarter: 2013Q4

REPORT INFORMATION
  Report Type: Spontaneous
  Country: US (occurrence: US)
  Receive Date: 20130903
  Receipt Date: 20131010
  Transmission Date: 20140711
  Serious: Yes (Other)
  Sender: FDA-Public Use
  Company Number: US-JNJFOC-20130815416

PATIENT
  Age: 40 Year
  Sex: Female

DRUGS (4)
  1. INVEGA SUSTENNA [Suspect]
     Indication: SCHIZOAFFECTIVE DISORDER
     Dosage: RIGHT DELTOID MUSCLE
     Route: 030
     Dates: start: 20130819, end: 20130819
  2. INVEGA SUSTENNA [Suspect]
     Indication: SCHIZOAFFECTIVE DISORDER
     Dosage: RIGHT DELTOID MUSCLE
     Route: 030
     Dates: start: 20130812, end: 20130812
  3. LITHIUM [Concomitant]
     Indication: SCHIZOAFFECTIVE DISORDER
     Route: 065
     Dates: start: 20110922
  4. TOPAMAX [Concomitant]
     Indication: CONVULSION
     Route: 048
     Dates: start: 20120810

REACTIONS (6)
  - Speech disorder [Unknown]
  - Confusional state [Recovered/Resolved]
  - Disorientation [Recovered/Resolved]
  - Upper extremity mass [Recovered/Resolved]
  - Wrong technique in drug usage process [Unknown]
  - Erythema [Recovered/Resolved]
